FAERS Safety Report 5020325-9 (Version None)
Quarter: 2006Q2

REPORT INFORMATION
  Report Type: 
  Country: None (occurrence: None)
  Receive Date: 20060602
  Receipt Date: 20060519
  Transmission Date: 20061013
  Serious: Yes (Hospitalization)
  Sender: FDA-Public Use
  Company Number: MEDI-0004591

PATIENT
  Age: 2 Month
  Weight: 2.75 kg

DRUGS (1)
  1. SYNAGIS [Suspect]
     Indication: ANTIVIRAL PROPHYLAXIS
     Dosage: 40 MG, 1 IN 30 D, INTRAMUSCULAR
     Route: 030
     Dates: start: 20051229, end: 20060130

REACTIONS (2)
  - HAEMOPHILUS INFECTION [None]
  - LUNG DISORDER [None]
